FAERS Safety Report 8538941-6 (Version None)
Quarter: 2012Q3

REPORT INFORMATION
  Report Type: 
  Country: None (occurrence: None)
  Receive Date: 20120726
  Receipt Date: 20120717
  Transmission Date: 20120928
  Serious: Yes (Hospitalization)
  Sender: FDA-Public Use
  Company Number: FR-JNJFOC-20120709753

PATIENT
  Age: 42 Year
  Sex: Female

DRUGS (2)
  1. REMICADE [Suspect]
     Indication: PSORIASIS
     Dosage: 30TH INFUSION
     Route: 042
     Dates: start: 20120511, end: 20120511
  2. REMICADE [Suspect]
     Route: 042

REACTIONS (2)
  - LEUKOCYTOCLASTIC VASCULITIS [None]
  - PURPURA [None]
